FAERS Safety Report 9029423 (Version 1)
Quarter: 2013Q1

REPORT INFORMATION
  Report Type: Spontaneous
  Country: BR (occurrence: BR)
  Receive Date: 20130125
  Receipt Date: 20130125
  Transmission Date: 20140127
  Serious: Yes (Other)
  Sender: FDA-Public Use
  Company Number: BR-ABBOTT-13P-020-1038625-00

PATIENT
  Sex: Male
  Weight: 93 kg

DRUGS (8)
  1. DEPAKENE [Suspect]
     Indication: EPILEPSY
     Route: 048
     Dates: start: 1985, end: 201208
  2. DEPAKENE [Suspect]
     Route: 048
     Dates: start: 2012
  3. CARBAMAZEPINE [Suspect]
     Indication: EPILEPSY
     Route: 048
     Dates: start: 1982
  4. EPILENIL [Suspect]
     Indication: EPILEPSY
     Dates: start: 201208
  5. PYRIDOSTIGMINE [Concomitant]
     Indication: MUSCULAR WEAKNESS
     Route: 048
     Dates: start: 1994
  6. MECICOTAN [Concomitant]
     Indication: PRODUCT USED FOR UNKNOWN INDICATION
     Dosage: ?
     Route: 048
     Dates: start: 1993
  7. MECICOTAN [Concomitant]
     Route: 048
  8. HIDANTAL [Concomitant]
     Indication: EPILEPSY

REACTIONS (2)
  - Brain operation [Unknown]
  - Epilepsy [Recovering/Resolving]
